FAERS Safety Report 9375937 (Version 1)
Quarter: 2013Q2

REPORT INFORMATION
  Report Type: Spontaneous
  Country: DE (occurrence: DE)
  Receive Date: 20130628
  Receipt Date: 20130628
  Transmission Date: 20140414
  Serious: Yes (Life-Threatening, Hospitalization)
  Sender: FDA-Public Use
  Company Number: DE-GILEAD-2013-0074792

PATIENT
  Age: 79 Year
  Sex: Male

DRUGS (10)
  1. RANOLAZINE [Suspect]
     Indication: ANGINA PECTORIS
     Dosage: 375 MG, QD
     Route: 048
     Dates: start: 20130211, end: 20130228
  2. ASA [Concomitant]
     Indication: CORONARY ARTERY DISEASE
     Dosage: 100 MG, QD
  3. CLOPIDOGREL BISULFATE [Concomitant]
     Indication: CORONARY ARTERY DISEASE
     Dosage: 75 MG, QD
  4. SEVIKAR HCT [Concomitant]
     Indication: HYPERTENSION
     Dosage: 54.5 MG, UNK
  5. SORTIS [Concomitant]
     Indication: HYPERCHOLESTEROLAEMIA
     Dosage: 10 MG, UNK
  6. IMUREK                             /00001501/ [Concomitant]
     Indication: MYALGIA
  7. JANUMET [Concomitant]
     Indication: DIABETES MELLITUS
     Dosage: 150 MG, UNK
  8. LANTUS [Concomitant]
     Indication: DIABETES MELLITUS
     Dosage: 8 IU, UNK
  9. GLIMEPIRIDE [Concomitant]
     Indication: DIABETES MELLITUS
     Dosage: 2 MG, UNK
  10. METOPROLOL SUCCINATE [Concomitant]
     Indication: CORONARY ARTERY DISEASE
     Dosage: 47.5 MG, UNK

REACTIONS (2)
  - Renal failure acute [Recovered/Resolved]
  - Cardiac failure [Recovered/Resolved]
